FAERS Safety Report 5742440-4 (Version None)
Quarter: 2008Q2

REPORT INFORMATION
  Report Type: 
  Country: None (occurrence: None)
  Receive Date: 20080515
  Receipt Date: 20080507
  Transmission Date: 20081010
  Serious: Yes (Life-Threatening, Hospitalization)
  Sender: FDA-Public Use
  Company Number: MSTR-NO-0801S-0001

PATIENT
  Age: 67 Year
  Sex: Female
  Weight: 48.4 kg

DRUGS (5)
  1. METASTRON [Suspect]
     Indication: METASTATIC PAIN
     Dosage: 96.8 MBQ, I.V.
     Route: 042
     Dates: start: 20071211, end: 20071211
  2. XELODA [Concomitant]
  3. ZOLEDRONIC ACID [Concomitant]
  4. OXYCODONE HYDROCHLORIDE [Concomitant]
  5. DICLOFENAC SODIUM [Concomitant]

REACTIONS (4)
  - BONE MARROW FAILURE [None]
  - CONDITION AGGRAVATED [None]
  - PAIN [None]
  - TUMOUR INVASION [None]
